FAERS Safety Report 8154591-8 (Version None)
Quarter: 2012Q1

REPORT INFORMATION
  Report Type: 
  Country: None (occurrence: None)
  Receive Date: 20120221
  Receipt Date: 20120214
  Transmission Date: 20120608
  Serious: Yes (Disabling)
  Sender: FDA-Public Use
  Company Number: CA-B.I. PHARMACEUTICALS,INC./RIDGEFIELD-2012-CN-00345CN

PATIENT
  Age: 69 Year
  Sex: Male
  Weight: 83.91 kg

DRUGS (4)
  1. ALLOPURINOL [Concomitant]
     Route: 048
  2. PRADAXA [Suspect]
     Dosage: 300 MG
     Route: 048
  3. COLCHICINE [Concomitant]
     Route: 065
  4. SOTALOL HCL [Concomitant]
     Route: 048

REACTIONS (5)
  - WEIGHT DECREASED [None]
  - NORMOCHROMIC NORMOCYTIC ANAEMIA [None]
  - MYALGIA [None]
  - MUSCULAR WEAKNESS [None]
  - ARTHRALGIA [None]
